FAERS Safety Report 6762366 (Version 13)
Quarter: 2013Q1

REPORT INFORMATION
  Report Type: Spontaneous
  Country: US (occurrence: US)
  Receive Date: 20080918
  Receipt Date: 20130123
  Transmission Date: 20140127
  Serious: Yes (Disabling, Other)
  Sender: FDA-Public Use
  Company Number: PHEH2008US08145

PATIENT
  Sex: Female

DRUGS (43)
  1. AREDIA [Suspect]
     Indication: OSTEOPOROSIS
     Dosage: 30 MG, UNK
     Dates: start: 20000608, end: 20030401
  2. AREDIA [Suspect]
     Dosage: 90MG
     Route: 042
  3. ZOMETA [Suspect]
     Dosage: 4 MG, UNK
     Dates: start: 20011005, end: 20060515
  4. ALBUTEROL [Concomitant]
  5. TRAMADOL [Concomitant]
  6. MIRAPEX ^BOEHRINGER INGELHEIM^ [Concomitant]
  7. PREDNISONE [Concomitant]
  8. CHLORHEXIDINE [Concomitant]
  9. AZITHROMYCIN [Concomitant]
  10. ACETAMINOPHEN W/HYDROCODONE BITARTRATE [Concomitant]
  11. LIPITOR                                 /NET/ [Concomitant]
  12. MOBIC [Concomitant]
  13. NEXIUM [Concomitant]
  14. SYNTHROID [Concomitant]
  15. ZITHROMAX ^HEINRICH MACK^ [Concomitant]
  16. ZYRTEC [Concomitant]
  17. VIOXX [Concomitant]
  18. CALCIUM W/VITAMIN D NOS [Concomitant]
  19. ULTRACET [Concomitant]
  20. VICODIN [Concomitant]
  21. BONIVA [Concomitant]
     Dosage: 150 MG, QMO
  22. METRONIDAZOLE [Concomitant]
  23. AMITRIPTYLINE [Concomitant]
  24. ZOMIG [Concomitant]
  25. CELEBREX [Concomitant]
  26. SPECTRACEF [Concomitant]
  27. GUAIFENESIN [Concomitant]
  28. HYDROCODONE [Concomitant]
  29. CLOTRIMAZOLE [Concomitant]
  30. METHYLPREDNISOLONE [Concomitant]
  31. CEFADROXIL [Concomitant]
  32. HYDROCHLOROTHIAZIDE [Concomitant]
  33. AMOXICILLIN [Concomitant]
  34. PROAIR HFA [Concomitant]
  35. TAMOXIFEN [Concomitant]
  36. INFLUENZA VACCINE [Concomitant]
  37. ESOMEPRAZOLE [Concomitant]
  38. DURICEF [Concomitant]
  39. LOTRISONE [Concomitant]
  40. VALTREX [Concomitant]
  41. NEURONTIN [Concomitant]
  42. IBUPROFEN [Concomitant]
  43. COUMADIN ^BOOTS^ [Concomitant]

REACTIONS (57)
  - Osteonecrosis of jaw [Unknown]
  - General physical health deterioration [Unknown]
  - Injury [Unknown]
  - Disability [Unknown]
  - Pain [Unknown]
  - Anxiety [Unknown]
  - Decreased interest [Unknown]
  - Bone disorder [Unknown]
  - Purulent discharge [Unknown]
  - Anaemia [Unknown]
  - Gastrooesophageal reflux disease [Unknown]
  - Dyslipidaemia [Unknown]
  - Hypothyroidism [Unknown]
  - Back pain [Unknown]
  - Eustachian tube dysfunction [Unknown]
  - Myalgia [Unknown]
  - Myositis [Unknown]
  - Arthralgia [Unknown]
  - Sjogren^s syndrome [Unknown]
  - Chronic sinusitis [Unknown]
  - Osteoarthritis [Unknown]
  - Fibromyalgia [Unknown]
  - Dry eye [Unknown]
  - Dry mouth [Unknown]
  - Ear pain [Unknown]
  - Nodule [Unknown]
  - Arthritis [Unknown]
  - Intervertebral disc degeneration [Unknown]
  - Hypertension [Unknown]
  - Diverticulum [Unknown]
  - Liver function test abnormal [Unknown]
  - Fall [Unknown]
  - Headache [Unknown]
  - Renal cyst [Unknown]
  - Tinea cruris [Unknown]
  - Autonomic nervous system imbalance [Unknown]
  - Muscle strain [Unknown]
  - Sciatica [Unknown]
  - Contusion [Unknown]
  - Hypercholesterolaemia [Unknown]
  - Dyspnoea [Unknown]
  - Herpes zoster [Unknown]
  - Sinus disorder [Unknown]
  - Metastases to spine [Unknown]
  - Gingival swelling [Unknown]
  - Hypotension [Unknown]
  - Extrasystoles [Unknown]
  - Heart rate irregular [Unknown]
  - Tonsillar haemorrhage [Unknown]
  - Bronchitis [Unknown]
  - Thyroid disorder [Unknown]
  - Tooth disorder [Unknown]
  - Impaired healing [Unknown]
  - Brain neoplasm [Unknown]
  - Amnesia [Unknown]
  - Blister [Unknown]
  - Seasonal allergy [Unknown]
